FAERS Safety Report 6529651-5 (Version None)
Quarter: 2010Q1

REPORT INFORMATION
  Report Type: 
  Country: None (occurrence: None)
  Receive Date: 20100104
  Receipt Date: 20091223
  Transmission Date: 20100710
  Serious: Yes (Other)
  Sender: FDA-Public Use
  Company Number: PL-EBEWE-1994MTX09

PATIENT
  Sex: Female
  Weight: 57 kg

DRUGS (6)
  1. METHOTREXATE [Suspect]
     Indication: RHEUMATOID ARTHRITIS
     Dosage: 20 MG, WEEKLY, ORAL
     Route: 048
     Dates: start: 20090601, end: 20091211
  2. NACLOFEN DUO [Concomitant]
  3. HELICID (OMEPRAZOLE) [Concomitant]
  4. RAMIPRIL [Concomitant]
  5. LOCREN (BETAXOLOL) [Concomitant]
  6. RIGEVIDON (LEVONORGESTREL) [Concomitant]

REACTIONS (1)
  - ANAEMIA MACROCYTIC [None]
